FAERS Safety Report 10711393 (Version 1)
Quarter: 2015Q1

REPORT INFORMATION
  Report Type: Report from Study
  Country: US (occurrence: US)
  Receive Date: 20150114
  Receipt Date: 20150114
  Transmission Date: 20150721
  Serious: Yes (Other)
  Sender: FDA-Public Use
  Company Number: PHEH2014US026156

PATIENT
  Sex: Female

DRUGS (1)
  1. GLEEVEC [Suspect]
     Active Substance: IMATINIB MESYLATE
     Indication: GASTRIC CANCER
     Dosage: 400 MG, QD (ONCE DAILY)
     Route: 048

REACTIONS (8)
  - Blindness transient [Unknown]
  - Blood urine present [Unknown]
  - Muscle spasms [Unknown]
  - Depression [Unknown]
  - Ear congestion [Unknown]
  - Gastric cancer recurrent [Unknown]
  - Thirst [Unknown]
  - Diarrhoea [Unknown]
